FAERS Safety Report 23645243 (Version 1)
Quarter: 2024Q1

REPORT INFORMATION
  Report Type: Spontaneous
  Country: MX (occurrence: MX)
  Receive Date: 20240318
  Receipt Date: 20240318
  Transmission Date: 20240410
  Serious: Yes (Other)
  Sender: FDA-Public Use
  Company Number: MX-LUNDBECK-DKLU3075572

PATIENT
  Age: 10 Year
  Sex: Male
  Weight: 48 kg

DRUGS (1)
  1. CLOBAZAM [Suspect]
     Active Substance: CLOBAZAM
     Indication: Epilepsy
     Route: 048
     Dates: start: 2021

REACTIONS (2)
  - Seizure [Unknown]
  - Product availability issue [Unknown]

NARRATIVE: CASE EVENT DATE: 20240311
